FAERS Safety Report 5352159-X (Version None)
Quarter: 2007Q2

REPORT INFORMATION
  Report Type: 
  Country: None (occurrence: None)
  Receive Date: 20070611
  Receipt Date: 20070604
  Transmission Date: 20071010
  Serious: Yes (Death, Hospitalization)
  Sender: FDA-Public Use
  Company Number: AU-NOVOPROD-264177

PATIENT
  Age: 74 Year
  Sex: Male
  Weight: 70 kg

DRUGS (4)
  1. NOVOSEVEN [Suspect]
     Indication: HAEMORRHAGE
     Dosage: 7.2 MG, SINGLE
     Route: 042
     Dates: start: 20050826, end: 20050826
  2. HEPARIN [Concomitant]
  3. RED BLOOD CELLS [Concomitant]
     Dosage: BEFORE DOSE 1
     Dates: start: 20050826
  4. RED BLOOD CELLS [Concomitant]
     Dosage: AFTER DOSE 1
     Dates: start: 20050826

REACTIONS (3)
  - CARDIAC TAMPONADE [None]
  - DISSEMINATED INTRAVASCULAR COAGULATION [None]
  - MULTI-ORGAN FAILURE [None]
